FAERS Safety Report 10170345 (Version 1)
Quarter: 2014Q2

REPORT INFORMATION
  Report Type: Spontaneous
  Country: SE (occurrence: SE)
  Receive Date: 20140513
  Receipt Date: 20140513
  Transmission Date: 20141212
  Serious: Yes (Hospitalization)
  Sender: FDA-Public Use
  Company Number: SE-WATSON-2014-09440

PATIENT
  Age: 35 Year
  Sex: Female
  Weight: 58 kg

DRUGS (1)
  1. LAMOTRIGIN ACTAVIS [Suspect]
     Indication: BIPOLAR DISORDER
     Dosage: 160 MG, DAILY
     Route: 065
     Dates: start: 200907, end: 201306

REACTIONS (6)
  - Stevens-Johnson syndrome [Unknown]
  - Insomnia [Unknown]
  - Malaise [Unknown]
  - Arthralgia [Unknown]
  - Dyspnoea [Unknown]
  - Liver function test abnormal [Unknown]
